FAERS Safety Report 25892914 (Version 3)
Quarter: 2025Q4

REPORT INFORMATION
  Report Type: Spontaneous
  Country: US (occurrence: US)
  Receive Date: 20251007
  Receipt Date: 20251106
  Transmission Date: 20260117
  Serious: Yes (Hospitalization, Other)
  Sender: SANOFI AVENTIS
  Company Number: US-SA-2025SA297463

PATIENT
  Sex: Female
  Weight: 77.27 kg

DRUGS (20)
  1. DUPIXENT [Suspect]
     Active Substance: DUPILUMAB
     Indication: Asthma
     Dosage: 300 MG, QOW
     Route: 058
  2. NEURONTIN [Concomitant]
     Active Substance: GABAPENTIN
     Dosage: 3.000DF Q3D
     Route: 048
  3. SINEMET [Concomitant]
     Active Substance: CARBIDOPA\LEVODOPA
     Dosage: 1.000DF Q3D
     Route: 048
  4. CELEXA [Concomitant]
     Active Substance: CITALOPRAM HYDROBROMIDE
     Dosage: 2 DF, QD
     Route: 048
  5. CELEXA [Concomitant]
     Active Substance: CITALOPRAM HYDROBROMIDE
     Dosage: 40.000MG QD
     Route: 048
  6. TRADJENTA [Concomitant]
     Active Substance: LINAGLIPTIN
     Dosage: 1.000DF QD
     Route: 048
  7. SYNTHROID [Concomitant]
     Active Substance: LEVOTHYROXINE SODIUM
     Dosage: 1.000DF QD
     Route: 048
  8. PREDNISONE [Concomitant]
     Active Substance: PREDNISONE
  9. CALCIUM [Concomitant]
     Active Substance: CALCIUM
     Dosage: 2 DF, QD
     Route: 048
  10. OMEPRAZOLE [Concomitant]
     Active Substance: OMEPRAZOLE
     Dosage: 1.000DF QD
     Route: 048
  11. NASACORT [Concomitant]
     Active Substance: TRIAMCINOLONE ACETONIDE
  12. VITAMIN D2 [Concomitant]
     Active Substance: ERGOCALCIFEROL
     Dosage: 1.000DF QD
     Route: 048
  13. ALBUTEROL [Concomitant]
     Active Substance: ALBUTEROL
  14. TRELEGY ELLIPTA [Concomitant]
     Active Substance: FLUTICASONE FUROATE\UMECLIDINIUM BROMIDE\VILANTEROL TRIFENATATE
     Dosage: 1.000DF QD
     Route: 055
     Dates: start: 20250226
  15. OXYGEN [Concomitant]
     Active Substance: OXYGEN
  16. ALPRAZOLAM [Concomitant]
     Active Substance: ALPRAZOLAM
     Dosage: UNK
     Route: 048
     Dates: start: 20181001
  17. CARBIDOPA AND LEVODOPA [Concomitant]
     Active Substance: CARBIDOPA\LEVODOPA
     Dosage: UNK
     Route: 048
     Dates: start: 20180919
  18. FLUVOXAMINE [Concomitant]
     Active Substance: FLUVOXAMINE
     Dosage: UNK
     Route: 048
     Dates: start: 20181001
  19. LEVOTHYROXINE [Concomitant]
     Active Substance: LEVOTHYROXINE
     Dosage: UNK
     Route: 048
     Dates: start: 20180919
  20. LOSARTAN [Concomitant]
     Active Substance: LOSARTAN
     Dosage: 1 DF, QD
     Route: 048

REACTIONS (11)
  - Ankle fracture [Unknown]
  - Respiratory failure [Not Recovered/Not Resolved]
  - Hip fracture [Unknown]
  - Pseudomonas infection [Unknown]
  - Dyspnoea [Not Recovered/Not Resolved]
  - Drug ineffective [Not Recovered/Not Resolved]
  - Productive cough [Unknown]
  - Cough [Unknown]
  - Wheezing [Unknown]
  - Dyspnoea exertional [Unknown]
  - Respiratory gas exchange disorder [Unknown]

NARRATIVE: CASE EVENT DATE: 20240901
